FAERS Safety Report 7311827-0 (Version None)
Quarter: 2011Q1

REPORT INFORMATION
  Report Type: 
  Country: None (occurrence: None)
  Receive Date: 20110224
  Receipt Date: 20110209
  Transmission Date: 20110831
  Serious: Yes (Hospitalization, Other)
  Sender: FDA-Public Use
  Company Number: US-BAYER-201031818NA

PATIENT
  Sex: Female
  Weight: 78.458 kg

DRUGS (7)
  1. CALCIUM [Concomitant]
  2. MAXZIDE [Concomitant]
     Dosage: 25 MG, UNK
  3. ASCORBIC ACID [Concomitant]
  4. TRIAMTERENE AND HYDROCHLOROTHIAZIDE [Concomitant]
     Indication: MENIERE'S DISEASE
  5. YAZ [Suspect]
     Indication: PRODUCT USED FOR UNKNOWN INDICATION
     Dosage: UNK
     Dates: start: 20040101, end: 20050101
  6. UNCODEABLE ^UNCLASSIFIABLE^ [Concomitant]
  7. YASMIN [Suspect]
     Indication: PRODUCT USED FOR UNKNOWN INDICATION
     Dosage: UNK
     Dates: start: 20040101, end: 20050101

REACTIONS (3)
  - CHEST PAIN [None]
  - THROMBOSIS [None]
  - PULMONARY EMBOLISM [None]
